FAERS Safety Report 19697675 (Version 1)
Quarter: 2021Q3

REPORT INFORMATION
  Report Type: Report from Study
  Country: US (occurrence: US)
  Receive Date: 20210813
  Receipt Date: 20210813
  Transmission Date: 20211014
  Serious: Yes (Other)
  Sender: FDA-Public Use
  Company Number: US-SA-2021SA113822

PATIENT
  Age: 39 Year
  Sex: Male

DRUGS (1)
  1. AGALSIDASE BETA [Suspect]
     Active Substance: AGALSIDASE BETA
     Indication: FABRY^S DISEASE
     Dosage: 75 MG, QOW
     Route: 042
     Dates: start: 20170224

REACTIONS (5)
  - Unevaluable event [Unknown]
  - Renal failure [Not Recovered/Not Resolved]
  - Neuropathy peripheral [Recovered/Resolved]
  - Feeling abnormal [Not Recovered/Not Resolved]
  - Pain in extremity [Not Recovered/Not Resolved]
